FAERS Safety Report 13735810 (Version 1)
Quarter: 2017Q3

REPORT INFORMATION
  Report Type: Spontaneous
  Country: BR (occurrence: BR)
  Receive Date: 20170710
  Receipt Date: 20170710
  Transmission Date: 20171127
  Serious: Yes (Other)
  Sender: FDA-Public Use
  Company Number: PHHY2012BR078025

PATIENT
  Sex: Female

DRUGS (1)
  1. DESERILA [Suspect]
     Active Substance: METHYSERGIDE MALEATE
     Indication: HEADACHE

REACTIONS (2)
  - Paralysis [Unknown]
  - Pain [Unknown]
